FAERS Safety Report 4991917-8 (Version None)
Quarter: 2006Q2

REPORT INFORMATION
  Report Type: 
  Country: None (occurrence: None)
  Receive Date: 20060504
  Receipt Date: 20060422
  Transmission Date: 20061013
  Serious: Yes (Other)
  Sender: FDA-Public Use
  Company Number: SA-SANOFI-SYNTHELABO-A01200603177

PATIENT
  Age: 65 Year
  Sex: Female

DRUGS (2)
  1. PLAVIX [Suspect]
     Indication: CEREBRAL INFARCTION
     Route: 048
     Dates: start: 20060218
  2. PLAVIX [Suspect]
     Route: 048
     Dates: start: 20060218

REACTIONS (1)
  - INTRACRANIAL VENOUS SINUS THROMBOSIS [None]
